FAERS Safety Report 10060353 (Version 3)
Quarter: 2014Q2

REPORT INFORMATION
  Report Type: Spontaneous
  Country: CA (occurrence: CA)
  Receive Date: 20140404
  Receipt Date: 20140515
  Transmission Date: 20141212
  Serious: Yes (Other)
  Sender: FDA-Public Use
  Company Number: CA-BAXTER-2014BAX013641

PATIENT
  Age: 83 Year
  Sex: Male

DRUGS (2)
  1. GAMMAGARD LIQUID -IMMUNE GLOBULIN INTRAVENOUS (HUMAN), [IGIV] 10% [Suspect]
     Indication: PRIMARY IMMUNODEFICIENCY SYNDROME
     Dosage: 1 VIAL
     Route: 042
     Dates: start: 20140114, end: 20140114
  2. GAMMAGARD LIQUID -IMMUNE GLOBULIN INTRAVENOUS (HUMAN), [IGIV] 10% [Suspect]
     Indication: SECONDARY IMMUNODEFICIENCY
     Dosage: 1 VIAL
     Route: 042
     Dates: start: 20140114, end: 20140114

REACTIONS (13)
  - Hypersensitivity [Recovered/Resolved]
  - Transfusion-related immunomodulation reaction [Recovered/Resolved]
  - Throat tightness [Recovered/Resolved]
  - Wheezing [Recovered/Resolved]
  - Pyrexia [Recovered/Resolved]
  - Chills [Recovered/Resolved]
  - Tremor [Recovered/Resolved]
  - Dyspnoea [Recovered/Resolved]
  - Tachypnoea [Recovered/Resolved]
  - Hypertension [Recovered/Resolved]
  - Headache [Recovered/Resolved]
  - Hypoxia [Recovered/Resolved]
  - Tachycardia [Recovered/Resolved]
